FAERS Safety Report 5599227-5 (Version None)
Quarter: 2008Q1

REPORT INFORMATION
  Report Type: 
  Country: None (occurrence: None)
  Receive Date: 20080117
  Receipt Date: 20080112
  Transmission Date: 20080703
  Serious: Yes (Other)
  Sender: FDA-Public Use
  Company Number: CHPA2008US00803

PATIENT
  Age: 67 Year
  Sex: Male

DRUGS (1)
  1. BENEFIBER W/WHEAT DEXTRIN (NCH)(WHEAT DEXTRIN) POWDER [Suspect]
     Indication: COLITIS ULCERATIVE
     Dosage: 2 TSP, TID; ORAL
     Route: 048
     Dates: start: 20080101

REACTIONS (2)
  - HAEMATOCHEZIA [None]
  - SELF-MEDICATION [None]
